FAERS Safety Report 24301052 (Version 1)
Quarter: 2024Q3

REPORT INFORMATION
  Report Type: Report from Study
  Country: NL (occurrence: NL)
  Receive Date: 20240910
  Receipt Date: 20240910
  Transmission Date: 20241016
  Serious: Yes (Other)
  Sender: BIOVITRUM
  Company Number: NL-AstraZeneca-2024A201569

PATIENT
  Age: 139 Day
  Sex: Female
  Weight: 5 kg

DRUGS (3)
  1. SYNAGIS [Suspect]
     Active Substance: PALIVIZUMAB
     Indication: Premature baby
     Route: 030
     Dates: start: 20240903
  2. LAXEERD LACTUL [Concomitant]
     Indication: Product used for unknown indication
  3. FERROCHL DRANK [Concomitant]
     Indication: Product used for unknown indication

REACTIONS (1)
  - Shock [Recovered/Resolved]

NARRATIVE: CASE EVENT DATE: 20240903
